FAERS Safety Report 4766511-4 (Version None)
Quarter: 2005Q3

REPORT INFORMATION
  Report Type: 
  Country: None (occurrence: None)
  Receive Date: 20050909
  Receipt Date: 20050901
  Transmission Date: 20060218
  Serious: Yes (Other)
  Sender: FDA-Public Use
  Company Number: 2005089273

PATIENT
  Age: 59 Year
  Sex: Female

DRUGS (1)
  1. NORVASC [Suspect]
     Indication: HYPERTENSION
     Dosage: (10 MG), ORAL
     Route: 048

REACTIONS (4)
  - DIZZINESS [None]
  - SYNCOPE [None]
  - TREMOR [None]
  - URINARY INCONTINENCE [None]
